FAERS Safety Report 21974827 (Version 2)
Quarter: 2023Q1

REPORT INFORMATION
  Report Type: Spontaneous
  Country: IT (occurrence: IT)
  Receive Date: 20230209
  Receipt Date: 20230224
  Transmission Date: 20230418
  Serious: Yes (Death)
  Sender: FDA-Public Use
  Company Number: IT-TEVA-2023-IT-2852721

PATIENT
  Age: 18 Year
  Sex: Male

DRUGS (3)
  1. MIRTAZAPINE [Suspect]
     Active Substance: MIRTAZAPINE
     Indication: Drug abuse
     Dosage: 30MG TABLETS WERE RETRIEVED FROM HIS CAR.
     Route: 065
  2. METHADONE [Suspect]
     Active Substance: METHADONE HYDROCHLORIDE
     Indication: Drug abuse
     Dosage: HALF OF A VIAL , METHADONE: 0.50 %
     Route: 065
  3. FLURAZEPAM [Suspect]
     Active Substance: FLURAZEPAM HYDROCHLORIDE
     Indication: Drug abuse
     Route: 065

REACTIONS (6)
  - Nervous system disorder [Fatal]
  - Brain oedema [Fatal]
  - Pulmonary oedema [Fatal]
  - Intentional overdose [Fatal]
  - Drug abuse [Fatal]
  - Toxicity to various agents [Fatal]
